FAERS Safety Report 4374966-2 (Version None)
Quarter: 2004Q2

REPORT INFORMATION
  Report Type: 
  Country: None (occurrence: None)
  Receive Date: 20040604
  Receipt Date: 20040524
  Transmission Date: 20050107
  Serious: No
  Sender: FDA-Public Use
  Company Number: 2004GB01269

PATIENT
  Age: 50 Year
  Sex: Male

DRUGS (2)
  1. ESOMEPRAZOLE [Suspect]
     Indication: DYSPEPSIA
     Dosage: 40 MG QD PO
     Route: 048
     Dates: start: 19980101
  2. PAROXETINE HCL [Suspect]
     Indication: DEPRESSION
     Dosage: 30 MG DAILY PO
     Route: 048
     Dates: start: 19980101

REACTIONS (2)
  - HEADACHE [None]
  - SYNCOPE [None]
